FAERS Safety Report 9375114 (Version 2)
Quarter: 2013Q3

REPORT INFORMATION
  Report Type: Spontaneous
  Country: DE (occurrence: DE)
  Receive Date: 20130628
  Receipt Date: 20130712
  Transmission Date: 20140515
  Serious: Yes (Other)
  Sender: FDA-Public Use
  Company Number: DE-JNJFOC-20130611775

PATIENT
  Sex: 0

DRUGS (7)
  1. REOPRO [Suspect]
     Indication: PERCUTANEOUS CORONARY INTERVENTION
     Dosage: INTRAVENOUS BOLUS
     Route: 042
  2. REOPRO [Suspect]
     Indication: PERCUTANEOUS CORONARY INTERVENTION
     Dosage: INTRAVENOUS INFUSION
     Route: 042
  3. ASPIRIN [Concomitant]
     Indication: MYOCARDIAL INFARCTION
     Route: 042
  4. HEPARIN [Concomitant]
     Indication: MYOCARDIAL INFARCTION
     Dosage: 7U/KG/H
     Route: 065
  5. CLOPIDOGREL [Concomitant]
     Indication: PERCUTANEOUS CORONARY INTERVENTION
     Route: 065
  6. NITROGLYCERINE [Concomitant]
     Indication: ANGIOPLASTY
     Route: 022
  7. ASPIRIN [Concomitant]
     Indication: PERCUTANEOUS CORONARY INTERVENTION
     Route: 065

REACTIONS (3)
  - Cardiac arrest [Unknown]
  - Cardiac function test abnormal [Unknown]
  - Haemorrhage [Unknown]
